FAERS Safety Report 26069830 (Version 1)
Quarter: 2025Q4

REPORT INFORMATION
  Report Type: Spontaneous
  Country: TH (occurrence: TH)
  Receive Date: 20251120
  Receipt Date: 20251120
  Transmission Date: 20260118
  Serious: Yes (Other)
  Sender: SANDOZ
  Company Number: TH-002147023-NVSC2025TH167092

PATIENT
  Age: 66 Year
  Sex: Female

DRUGS (5)
  1. FULVESTRANT [Suspect]
     Active Substance: FULVESTRANT
     Indication: Product used for unknown indication
     Dosage: 500 MG
     Route: 065
     Dates: start: 20230104
  2. PIQRAY [Suspect]
     Active Substance: ALPELISIB
     Indication: PIK3CA-activated mutation
     Dosage: 150 MG, QD
     Route: 065
     Dates: start: 20230202
  3. PIQRAY [Suspect]
     Active Substance: ALPELISIB
     Indication: Breast cancer metastatic
     Dosage: 200 MG, QD
     Route: 065
     Dates: start: 20230518, end: 20250820
  4. PIQRAY [Suspect]
     Active Substance: ALPELISIB
     Indication: Breast cancer
     Dosage: 250 MG, QD (RECHALLENGE DOSE)
     Route: 065
  5. PIQRAY [Suspect]
     Active Substance: ALPELISIB
     Indication: Hormone receptor positive HER2 negative breast cancer
     Dosage: 300 MG, QD
     Route: 048
     Dates: start: 20230104

REACTIONS (5)
  - Breast cancer metastatic [Unknown]
  - Malignant neoplasm progression [Unknown]
  - Rash [Unknown]
  - Drug resistance [Unknown]
  - Drug ineffective [Unknown]

NARRATIVE: CASE EVENT DATE: 20230113
